FAERS Safety Report 5002278-2 (Version None)
Quarter: 2006Q2

REPORT INFORMATION
  Report Type: 
  Country: None (occurrence: None)
  Receive Date: 20060511
  Receipt Date: 20060511
  Transmission Date: 20061013
  Serious: Yes (Disabling)
  Sender: FDA-Public Use
  Company Number: None

PATIENT
  Age: 66 Year
  Sex: Female
  Weight: 117.9352 kg

DRUGS (2)
  1. DURAGESIC-100 [Suspect]
     Indication: INTERVERTEBRAL DISC DEGENERATION
     Dosage: 75 MG/HR ONE Q 72 H (TRANSDERMAL)
     Route: 062
  2. DURAGESIC-100 [Suspect]
     Indication: RADICULAR SYNDROME
     Dosage: 75 MG/HR ONE Q 72 H (TRANSDERMAL)
     Route: 062

REACTIONS (6)
  - ASTHENIA [None]
  - INTERVERTEBRAL DISC DEGENERATION [None]
  - OBESITY [None]
  - OSTEOARTHRITIS [None]
  - RADICULAR SYNDROME [None]
  - ROTATOR CUFF REPAIR [None]
